FAERS Safety Report 9860884 (Version 1)
Quarter: 2014Q1

REPORT INFORMATION
  Report Type: Spontaneous
  Country: US (occurrence: US)
  Receive Date: 20140202
  Receipt Date: 20140202
  Transmission Date: 20141002
  Serious: No
  Sender: FDA-Public Use
  Company Number: US-ALLERGAN-1301888US

PATIENT
  Age: 47 Year
  Sex: Female

DRUGS (4)
  1. BOTOX COSMETIC [Suspect]
     Indication: SKIN WRINKLING
     Dosage: UNK, SINGLE
     Route: 030
     Dates: start: 20130131, end: 20130131
  2. BOTOX COSMETIC [Suspect]
     Indication: SKIN WRINKLING
  3. SYNTHROID [Concomitant]
     Indication: THYROIDECTOMY
     Dosage: UNK
     Dates: start: 1998
  4. VITAMIN D                          /00107901/ [Concomitant]
     Indication: SUPPLEMENTATION THERAPY
     Dosage: UNK

REACTIONS (3)
  - Eyelid oedema [Unknown]
  - Erythema of eyelid [Unknown]
  - Eyelid disorder [Unknown]
